FAERS Safety Report 9851712 (Version 2)
Quarter: 2014Q1

REPORT INFORMATION
  Report Type: Report from Study
  Country: DE (occurrence: DE)
  Receive Date: 20140129
  Receipt Date: 20140220
  Transmission Date: 20141002
  Serious: Yes (Hospitalization)
  Sender: FDA-Public Use
  Company Number: DE-ROCHE-1338337

PATIENT
  Age: 79 Year
  Sex: Female

DRUGS (21)
  1. TOCILIZUMAB [Suspect]
     Indication: RHEUMATOID ARTHRITIS
     Route: 065
     Dates: start: 20090527, end: 20130506
  2. TOCILIZUMAB [Suspect]
     Route: 065
     Dates: end: 20130829
  3. TOCILIZUMAB [Suspect]
     Route: 065
     Dates: start: 20130829
  4. TOCILIZUMAB [Suspect]
     Route: 065
     Dates: start: 20090916
  5. TOCILIZUMAB [Suspect]
     Route: 065
     Dates: start: 20091202
  6. TOCILIZUMAB [Suspect]
     Route: 065
     Dates: start: 20100618
  7. TOCILIZUMAB [Suspect]
     Route: 065
     Dates: start: 20101104
  8. TOCILIZUMAB [Suspect]
     Route: 065
     Dates: start: 20110502
  9. TOCILIZUMAB [Suspect]
     Route: 065
     Dates: start: 20111115
  10. TOCILIZUMAB [Suspect]
     Route: 065
     Dates: start: 20120515
  11. TOCILIZUMAB [Suspect]
     Route: 065
     Dates: start: 20121120
  12. TOCILIZUMAB [Suspect]
     Route: 065
     Dates: start: 20130829
  13. METHOTREXATE [Suspect]
     Indication: PRODUCT USED FOR UNKNOWN INDICATION
     Route: 051
     Dates: start: 2006
  14. METHOTREXATE [Suspect]
     Route: 065
     Dates: start: 20130821
  15. METHOTREXATE [Suspect]
     Route: 065
  16. METHOTREXATE [Suspect]
     Route: 065
  17. METHOTREXATE [Suspect]
     Route: 065
     Dates: start: 20090527
  18. METHOTREXATE [Suspect]
     Route: 065
     Dates: start: 20090916
  19. METHOTREXATE [Suspect]
     Route: 065
     Dates: start: 20091202
  20. METHOTREXATE [Suspect]
     Route: 065
     Dates: start: 20100618
  21. METHOTREXATE [Suspect]
     Route: 065
     Dates: start: 20101104

REACTIONS (1)
  - Limb amputation [Recovered/Resolved]
